FAERS Safety Report 7622739-7 (Version None)
Quarter: 2011Q3

REPORT INFORMATION
  Report Type: 
  Country: None (occurrence: None)
  Receive Date: 20110712
  Receipt Date: 20110708
  Transmission Date: 20111222
  Serious: Yes (Hospitalization, Other)
  Sender: FDA-Public Use
  Company Number: 201110589

PATIENT
  Age: 66 Year
  Sex: Male

DRUGS (3)
  1. BUPIVACAINE HCL [Concomitant]
  2. DILAUDID [Concomitant]
  3. LIORESAL [Suspect]
     Indication: MUSCLE SPASTICITY
     Dosage: 281.55 MCG, DAILY, INTRATHECAL
     Route: 037

REACTIONS (3)
  - INFLAMMATION [None]
  - RADICULAR PAIN [None]
  - MASS [None]
